FAERS Safety Report 23368935 (Version 2)
Quarter: 2024Q1

REPORT INFORMATION
  Report Type: Report from Study
  Country: US (occurrence: US)
  Receive Date: 20240105
  Receipt Date: 20240212
  Transmission Date: 20240409
  Serious: No
  Sender: FDA-Public Use
  Company Number: US-AstraZeneca-CH-00537614A

PATIENT
  Sex: Female

DRUGS (1)
  1. SOLIRIS [Suspect]
     Active Substance: ECULIZUMAB
     Indication: Neuromyelitis optica spectrum disorder
     Dosage: UNK, Q2W
     Route: 042

REACTIONS (8)
  - Pain [Unknown]
  - Gait disturbance [Recovering/Resolving]
  - Burning sensation [Not Recovered/Not Resolved]
  - Lacrimation increased [Unknown]
  - Asthenia [Recovering/Resolving]
  - Constipation [Not Recovered/Not Resolved]
  - Skin discolouration [Unknown]
  - Chest discomfort [Unknown]
